FAERS Safety Report 25875610 (Version 1)
Quarter: 2025Q4

REPORT INFORMATION
  Report Type: Spontaneous
  Country: US (occurrence: US)
  Receive Date: 20251003
  Receipt Date: 20251003
  Transmission Date: 20260117
  Serious: No
  Sender: ADVANZ PHARMA
  Company Number: US-ADVANZ PHARMA-202509008547

PATIENT

DRUGS (1)
  1. PANRETIN [Suspect]
     Active Substance: ALITRETINOIN
     Dosage: UNK

REACTIONS (2)
  - Inability to afford medication [Unknown]
  - Therapy interrupted [Unknown]
